FAERS Safety Report 20006623 (Version 1)
Quarter: 2021Q4

REPORT INFORMATION
  Report Type: Spontaneous
  Country: ES (occurrence: ES)
  Receive Date: 20211028
  Receipt Date: 20211028
  Transmission Date: 20220303
  Serious: Yes (Other)
  Sender: FDA-Public Use
  Company Number: ES-SA-SAC20210610000453

PATIENT
  Age: 68 Year
  Sex: Male
  Weight: 83 kg

DRUGS (13)
  1. METFORMIN [Suspect]
     Active Substance: METFORMIN HYDROCHLORIDE
     Indication: Hyperglycaemia
     Dosage: UNK
     Route: 065
  2. INSULIN GLARGINE [Suspect]
     Active Substance: INSULIN GLARGINE
     Indication: Type 2 diabetes mellitus
     Dosage: UNK UNK, ONCE A DAY
     Route: 058
     Dates: start: 202008, end: 2021
  3. INSULIN GLARGINE [Suspect]
     Active Substance: INSULIN GLARGINE
     Dosage: 34 INTERNATIONAL UNIT, ONCE A DAY
     Route: 058
     Dates: start: 2021
  4. INSULIN GLARGINE [Suspect]
     Active Substance: INSULIN GLARGINE
     Dosage: 24 INTERNATIONAL UNIT, ONCE A DAY
     Route: 065
     Dates: start: 2021, end: 2021
  5. INSULIN GLARGINE [Suspect]
     Active Substance: INSULIN GLARGINE
     Dosage: 36 INTERNATIONAL UNIT, ONCE A DAY
     Route: 065
     Dates: start: 2021, end: 2021
  6. INSULIN GLARGINE [Suspect]
     Active Substance: INSULIN GLARGINE
     Dosage: 36 INTERNATIONAL UNIT, ONCE A DAY
     Route: 058
     Dates: start: 2021, end: 2021
  7. INSULIN GLARGINE [Suspect]
     Active Substance: INSULIN GLARGINE
     Dosage: 28 INTERNATIONAL UNIT, ONCE A DAY
     Route: 058
     Dates: start: 2021, end: 2021
  8. INSULIN GLARGINE [Suspect]
     Active Substance: INSULIN GLARGINE
     Dosage: 40 INTERNATIONAL UNIT, ONCE A DAY
     Route: 058
     Dates: start: 202107, end: 2021
  9. INSULIN GLARGINE [Suspect]
     Active Substance: INSULIN GLARGINE
     Dosage: UNK
  10. JARDIANCE [Suspect]
     Active Substance: EMPAGLIFLOZIN
     Indication: Hyperglycaemia
     Dosage: UNK
     Route: 065
  11. INSULIN NOS [Suspect]
     Active Substance: INSULIN NOS
     Indication: Hyperglycaemia
     Dosage: 4 DOSAGE FORM, 3 TIMES A DAY
     Route: 065
  12. INSULIN NOS [Suspect]
     Active Substance: INSULIN NOS
     Dosage: 2 DOSAGE FORM, 3 TIMES A DAY (DOSE REDUCED)
     Route: 065
  13. SITAGLIPTIN PHOSPHATE [Concomitant]
     Active Substance: SITAGLIPTIN PHOSPHATE
     Indication: Diabetes mellitus
     Dosage: UNK
     Route: 048

REACTIONS (10)
  - Diabetes mellitus inadequate control [Not Recovered/Not Resolved]
  - Product prescribing issue [Unknown]
  - Blood glucose increased [Recovered/Resolved]
  - Hypoglycaemia [Recovered/Resolved]
  - Blood glucose decreased [Not Recovered/Not Resolved]
  - Hyperglycaemia [Recovered/Resolved]
  - Hyperhidrosis [Recovered/Resolved]
  - Fatigue [Unknown]
  - Drug ineffective [Unknown]
  - Hypoglycaemia [Unknown]

NARRATIVE: CASE EVENT DATE: 20200101
